FAERS Safety Report 10915876 (Version 2)
Quarter: 2015Q3

REPORT INFORMATION
  Report Type: Report from Study
  Country: US (occurrence: US)
  Receive Date: 20150316
  Receipt Date: 20150706
  Transmission Date: 20151125
  Serious: No
  Sender: FDA-Public Use
  Company Number: US-VERTEX PHARMACEUTICALS-2015-000729

PATIENT
  Sex: Female

DRUGS (1)
  1. KALYDECO [Suspect]
     Active Substance: IVACAFTOR
     Indication: CYSTIC FIBROSIS
     Dosage: UNK
     Route: 048
     Dates: start: 20140721

REACTIONS (3)
  - Nasopharyngitis [Recovered/Resolved]
  - Visual impairment [Unknown]
  - Headache [Recovered/Resolved]

NARRATIVE: CASE EVENT DATE: 2014
